FAERS Safety Report 4935207-8 (Version None)
Quarter: 2006Q1

REPORT INFORMATION
  Report Type: 
  Country: None (occurrence: None)
  Receive Date: 20060302
  Receipt Date: 20060214
  Transmission Date: 20060701
  Serious: Yes (Other)
  Sender: FDA-Public Use
  Company Number: US200511000034

PATIENT
  Age: 40 Year
  Sex: Female
  Weight: 56.7 kg

DRUGS (7)
  1. CYMBALTA [Suspect]
     Indication: DEPRESSION
     Dosage: 30 MG
     Dates: start: 20051026, end: 20051029
  2. NEURONTIN [Concomitant]
  3. CIPROFLOXACIN HCL [Concomitant]
  4. DIFLUCAN [Concomitant]
  5. FLEXERIL [Concomitant]
  6. METHADONE HCL [Concomitant]
  7. LANTUS [Concomitant]

REACTIONS (2)
  - COMPLEX PARTIAL SEIZURES [None]
  - GRAND MAL CONVULSION [None]
